FAERS Safety Report 8605955-7 (Version None)
Quarter: 2012Q3

REPORT INFORMATION
  Report Type: 
  Country: None (occurrence: None)
  Receive Date: 20120820
  Receipt Date: 20120813
  Transmission Date: 20120928
  Serious: Yes (Hospitalization, Other)
  Sender: FDA-Public Use
  Company Number: CA-JNJFOC-20120312210

PATIENT
  Sex: Male
  Weight: 79 kg

DRUGS (8)
  1. REMICADE [Suspect]
     Route: 042
     Dates: start: 20070601
  2. IMURAN [Concomitant]
  3. REMICADE [Suspect]
     Indication: CROHN'S DISEASE
     Route: 042
     Dates: start: 20080219
  4. REMICADE [Suspect]
     Route: 042
     Dates: start: 20120501, end: 20120501
  5. CALCIUM [Concomitant]
  6. HYDROCHLOROTHIAZIDES [Concomitant]
     Indication: HYPERTENSION
  7. VITAMIN D [Concomitant]
  8. REMICADE [Suspect]
     Route: 042
     Dates: start: 20110901

REACTIONS (1)
  - LYMPHOMA [None]
